FAERS Safety Report 14484348 (Version 1)
Quarter: 2018Q1

REPORT INFORMATION
  Report Type: Spontaneous
  Country: US (occurrence: US)
  Receive Date: 20180202
  Receipt Date: 20180202
  Transmission Date: 20180509
  Serious: Yes (Hospitalization)
  Sender: FDA-Public Use
  Company Number: None

PATIENT
  Sex: Male

DRUGS (35)
  1. MUCINEX [Concomitant]
     Active Substance: GUAIFENESIN
  2. LISINOPRIL. [Concomitant]
     Active Substance: LISINOPRIL
  3. ALBUTEROL. [Concomitant]
     Active Substance: ALBUTEROL
  4. DOCUSATE SOD [Concomitant]
  5. VITAMIN C [Concomitant]
     Active Substance: ASCORBIC ACID
  6. IPRATROPIUM [Concomitant]
     Active Substance: IPRATROPIUM
  7. OMEPRAZOLE. [Concomitant]
     Active Substance: OMEPRAZOLE
  8. OXYCODONE [Concomitant]
     Active Substance: OXYCODONE
  9. PROCHLORPER [Concomitant]
  10. DIPHENHYDRAM [Concomitant]
  11. TRAZODONE [Concomitant]
     Active Substance: TRAZODONE HYDROCHLORIDE
  12. LOPERAMIDE [Concomitant]
     Active Substance: LOPERAMIDE
  13. RANITIDINE. [Concomitant]
     Active Substance: RANITIDINE
  14. CEPACOL [Concomitant]
     Active Substance: BENZOCAINE
  15. TAMUSULIN [Concomitant]
  16. FOLIC ACID. [Concomitant]
     Active Substance: FOLIC ACID
  17. HYDROXYZ HCL [Concomitant]
     Active Substance: HYDROXYZINE HYDROCHLORIDE
  18. LEVOTHYROXIN [Concomitant]
     Active Substance: LEVOTHYROXINE
  19. ACCU-CHECK [Concomitant]
  20. ACETAMINOPHEN. [Concomitant]
     Active Substance: ACETAMINOPHEN
  21. ATORVASTATIN [Concomitant]
     Active Substance: ATORVASTATIN
  22. BISACODYL. [Concomitant]
     Active Substance: BISACODYL
  23. BUMETANIDE. [Concomitant]
     Active Substance: BUMETANIDE
  24. SERTRALINE [Concomitant]
     Active Substance: SERTRALINE HYDROCHLORIDE
  25. CLONAZEPAM. [Concomitant]
     Active Substance: CLONAZEPAM
  26. FLUTICASONE. [Concomitant]
     Active Substance: FLUTICASONE
  27. VITAMIN D3 [Concomitant]
     Active Substance: CHOLECALCIFEROL
  28. LORATADINE. [Concomitant]
     Active Substance: LORATADINE
  29. CALCIUM [Suspect]
     Active Substance: CALCIUM
  30. LANTUS [Concomitant]
     Active Substance: INSULIN GLARGINE
  31. SENSIPAR [Suspect]
     Active Substance: CINACALCET HYDROCHLORIDE
     Indication: END STAGE RENAL DISEASE
     Route: 048
     Dates: start: 20170512
  32. ASPIRIN. [Concomitant]
     Active Substance: ASPIRIN
  33. SENNA [Concomitant]
     Active Substance: SENNA LEAF\SENNOSIDES\SENNOSIDES A AND B
  34. SYNTHROID [Concomitant]
     Active Substance: LEVOTHYROXINE SODIUM
  35. LINZESS [Concomitant]
     Active Substance: LINACLOTIDE

REACTIONS (1)
  - Chest pain [None]
